FAERS Safety Report 17684210 (Version 1)
Quarter: 2020Q2

REPORT INFORMATION
  Report Type: Spontaneous
  Country: US (occurrence: US)
  Receive Date: 20200417
  Receipt Date: 20200417
  Transmission Date: 20200714
  Serious: Yes (Hospitalization)
  Sender: FDA-Public Use
  Company Number: None

PATIENT
  Age: 89 Year
  Sex: Female
  Weight: 59.3 kg

DRUGS (1)
  1. AZITHROMYCIN ANHYDROUS. [Suspect]
     Active Substance: AZITHROMYCIN ANHYDROUS
     Indication: RESPIRATORY TRACT INFECTION
     Dates: start: 20200306, end: 20200307

REACTIONS (4)
  - Drug-disease interaction [None]
  - Dysphagia [None]
  - Myasthenia gravis [None]
  - Choking sensation [None]

NARRATIVE: CASE EVENT DATE: 20200306
